FAERS Safety Report 13079014 (Version 1)
Quarter: 2017Q1

REPORT INFORMATION
  Report Type: Spontaneous
  Country: ES (occurrence: ES)
  Receive Date: 20170102
  Receipt Date: 20170102
  Transmission Date: 20170428
  Serious: Yes (Other)
  Sender: FDA-Public Use
  Company Number: PHHY2016ES180396

PATIENT
  Age: 74 Year
  Sex: Female
  Weight: 86 kg

DRUGS (1)
  1. AFINITOR [Suspect]
     Active Substance: EVEROLIMUS
     Indication: PRODUCT USED FOR UNKNOWN INDICATION
     Dosage: 10 MG, UNK
     Route: 048
     Dates: start: 20160318, end: 20160930

REACTIONS (1)
  - Nephrotic syndrome [Recovered/Resolved with Sequelae]

NARRATIVE: CASE EVENT DATE: 20160915
